FAERS Safety Report 13130534 (Version 5)
Quarter: 2020Q3

REPORT INFORMATION
  Report Type: Report from Study
  Country: JP (occurrence: JP)
  Receive Date: 20170119
  Receipt Date: 20200901
  Transmission Date: 20201102
  Serious: Yes (Death, Hospitalization, Other)
  Sender: FDA-Public Use
  Company Number: JP-INCYTE CORPORATION-2015IN005288

PATIENT

DRUGS (35)
  1. JAKAVI [Suspect]
     Active Substance: RUXOLITINIB
     Dosage: 10 MG, BID
     Route: 048
     Dates: start: 20160316, end: 20160419
  2. JAKAVI [Suspect]
     Active Substance: RUXOLITINIB
     Dosage: 7.5 MG, BID
     Route: 048
     Dates: start: 20160628, end: 20160830
  3. CONCENTRATED RED CELLS [Concomitant]
     Active Substance: HUMAN RED BLOOD CELL
     Indication: MYELOFIBROSIS
     Dosage: 12 IU, UNK
     Route: 065
     Dates: start: 20160601, end: 20160601
  4. CONCENTRATED RED CELLS [Concomitant]
     Active Substance: HUMAN RED BLOOD CELL
     Dosage: 2 IU, UNK
     Route: 065
     Dates: start: 20160928, end: 20160928
  5. CONCENTRATED RED CELLS [Concomitant]
     Active Substance: HUMAN RED BLOOD CELL
     Dosage: 2 IU, UNK
     Route: 065
     Dates: start: 20161003, end: 20161003
  6. CONCENTRATED RED CELLS [Concomitant]
     Active Substance: HUMAN RED BLOOD CELL
     Dosage: 2 IU, UNK
     Route: 065
     Dates: start: 20161010, end: 20161010
  7. CONCENTRATED RED CELLS [Concomitant]
     Active Substance: HUMAN RED BLOOD CELL
     Dosage: 2 IU, UNK
     Route: 065
     Dates: start: 20161020, end: 20161020
  8. JAKAVI [Suspect]
     Active Substance: RUXOLITINIB
     Dosage: 10 MG, BID
     Route: 048
     Dates: start: 20160601, end: 20160627
  9. CONCENTRATED RED CELLS [Concomitant]
     Active Substance: HUMAN RED BLOOD CELL
     Dosage: 2 IU, UNK
     Route: 065
     Dates: start: 20160831, end: 20160831
  10. CONCENTRATED RED CELLS [Concomitant]
     Active Substance: HUMAN RED BLOOD CELL
     Dosage: 2 IU, UNK
     Route: 065
     Dates: start: 20160921, end: 20160921
  11. PLATELETS [Concomitant]
     Active Substance: HUMAN PLATELET, ALLOGENIC
     Dosage: 10 IU, UNK
     Route: 065
     Dates: start: 20160930, end: 20160930
  12. CONCENTRATED RED CELLS [Concomitant]
     Active Substance: HUMAN RED BLOOD CELL
     Dosage: 2 IU, UNK
     Route: 065
     Dates: start: 20160608, end: 20160608
  13. CONCENTRATED RED CELLS [Concomitant]
     Active Substance: HUMAN RED BLOOD CELL
     Dosage: 2 IU, UNK
     Route: 065
     Dates: start: 20160620, end: 20160620
  14. CONCENTRATED RED CELLS [Concomitant]
     Active Substance: HUMAN RED BLOOD CELL
     Dosage: 2 IU, UNK
     Route: 065
     Dates: start: 20161012, end: 20161012
  15. CONCENTRATED RED CELLS [Concomitant]
     Active Substance: HUMAN RED BLOOD CELL
     Dosage: 2 IU, UNK
     Route: 065
     Dates: start: 20161014, end: 20161014
  16. CONCENTRATED RED CELLS [Concomitant]
     Active Substance: HUMAN RED BLOOD CELL
     Dosage: 2 IU, UNK
     Route: 065
     Dates: start: 20161024, end: 20161024
  17. JAKAVI [Suspect]
     Active Substance: RUXOLITINIB
     Dosage: 12.5 MG, BID
     Route: 048
     Dates: start: 20160420, end: 20160531
  18. JAKAVI [Suspect]
     Active Substance: RUXOLITINIB
     Dosage: 5 MG, BID
     Route: 048
     Dates: start: 20160831
  19. CONCENTRATED RED CELLS [Concomitant]
     Active Substance: HUMAN RED BLOOD CELL
     Dosage: 2 IU, UNK
     Route: 065
     Dates: start: 20160627, end: 20160627
  20. JAKAVI [Suspect]
     Active Substance: RUXOLITINIB
     Dosage: 7.5 MG, BID
     Route: 048
     Dates: start: 20150527, end: 20150901
  21. JAKAVI [Suspect]
     Active Substance: RUXOLITINIB
     Dosage: 7.5 MG, BID
     Route: 048
     Dates: start: 20160106, end: 20160305
  22. CONCENTRATED RED CELLS [Concomitant]
     Active Substance: HUMAN RED BLOOD CELL
     Dosage: 2 IU, UNK
     Route: 065
     Dates: start: 20160615, end: 20160615
  23. CONCENTRATED RED CELLS [Concomitant]
     Active Substance: HUMAN RED BLOOD CELL
     Dosage: 2 IU, UNK
     Route: 065
     Dates: start: 20160703, end: 20160703
  24. CONCENTRATED RED CELLS [Concomitant]
     Active Substance: HUMAN RED BLOOD CELL
     Dosage: 2 IU, UNK
     Route: 065
     Dates: start: 20160706, end: 20160706
  25. JAKAVI [Suspect]
     Active Substance: RUXOLITINIB
     Indication: MYELOFIBROSIS
     Dosage: 5 MG, BID
     Route: 048
     Dates: start: 20141204, end: 20150526
  26. JAKAVI [Suspect]
     Active Substance: RUXOLITINIB
     Dosage: 5 MG, BID
     Route: 048
     Dates: start: 20150902
  27. CONCENTRATED RED CELLS [Concomitant]
     Active Substance: HUMAN RED BLOOD CELL
     Dosage: 2 IU, UNK
     Route: 065
     Dates: start: 20160907, end: 20160907
  28. CONCENTRATED RED CELLS [Concomitant]
     Active Substance: HUMAN RED BLOOD CELL
     Dosage: 2 IU, UNK
     Route: 065
     Dates: start: 20161005, end: 20161005
  29. PLATELETS [Concomitant]
     Active Substance: HUMAN PLATELET, ALLOGENIC
     Indication: MYELOFIBROSIS
     Route: 065
  30. CONCENTRATED RED CELLS [Concomitant]
     Active Substance: HUMAN RED BLOOD CELL
     Dosage: 2 IU, UNK
     Route: 065
     Dates: start: 20160824, end: 20160824
  31. CONCENTRATED RED CELLS [Concomitant]
     Active Substance: HUMAN RED BLOOD CELL
     Dosage: 2 IU, UNK
     Route: 065
     Dates: start: 20161001, end: 20161001
  32. PREDONINE [Concomitant]
     Active Substance: PREDNISOLONE
     Indication: MYELOFIBROSIS
     Dosage: 10 MG, UNK
     Route: 048
     Dates: start: 20161013
  33. PLATELETS [Concomitant]
     Active Substance: HUMAN PLATELET, ALLOGENIC
     Dosage: 10 IU, UNK
     Route: 065
     Dates: start: 20161010, end: 20161010
  34. CONCENTRATED RED CELLS [Concomitant]
     Active Substance: HUMAN RED BLOOD CELL
     Dosage: 2 IU, UNK
     Route: 065
     Dates: start: 20160630, end: 20160630
  35. CONCENTRATED RED CELLS [Concomitant]
     Active Substance: HUMAN RED BLOOD CELL
     Dosage: 2 IU, UNK
     Route: 065
     Dates: start: 20160930, end: 20160930

REACTIONS (19)
  - Dizziness [Recovered/Resolved]
  - Blood pressure increased [Unknown]
  - Hypoxia [Fatal]
  - Oedema peripheral [Not Recovered/Not Resolved]
  - Pneumonia bacterial [Not Recovered/Not Resolved]
  - Uterine prolapse [Recovering/Resolving]
  - Oral herpes [Recovered/Resolved]
  - Drug ineffective [Unknown]
  - Varices oesophageal [Not Recovered/Not Resolved]
  - Hyponatraemia [Recovered/Resolved]
  - Myelofibrosis [Fatal]
  - Pyrexia [Recovered/Resolved]
  - Aspergillus test positive [Not Recovered/Not Resolved]
  - Cellulitis [Recovering/Resolving]
  - Haemoglobin decreased [Not Recovered/Not Resolved]
  - Platelet count decreased [Not Recovered/Not Resolved]
  - Portal hypertension [Not Recovered/Not Resolved]
  - White blood cell count increased [Recovered/Resolved]
  - Infection [Recovered/Resolved]

NARRATIVE: CASE EVENT DATE: 20150304
